FAERS Safety Report 4868594-X (Version None)
Quarter: 2005Q4

REPORT INFORMATION
  Report Type: 
  Country: None (occurrence: None)
  Receive Date: 20051223
  Receipt Date: 20051215
  Transmission Date: 20060501
  Serious: Yes (Disabling, Other)
  Sender: FDA-Public Use
  Company Number: 2005169734

PATIENT
  Sex: Male
  Weight: 72.5755 kg

DRUGS (1)
  1. VIAGRA [Suspect]
     Indication: ERECTILE DYSFUNCTION
     Dosage: 50 MG (50 MG, AS NECESSARY) ORAL
     Route: 048

REACTIONS (5)
  - DIABETIC FOOT [None]
  - DRUG INEFFECTIVE [None]
  - LEG AMPUTATION [None]
  - PENILE VASCULAR DISORDER [None]
  - POOR PERIPHERAL CIRCULATION [None]
